FAERS Safety Report 25011332 (Version 1)
Quarter: 2025Q1

REPORT INFORMATION
  Report Type: Spontaneous
  Country: CA (occurrence: CA)
  Receive Date: 20250226
  Receipt Date: 20250226
  Transmission Date: 20250409
  Serious: Yes (Other)
  Sender: ORGANON
  Company Number: CA-ORGANON-O2502CAN001530

PATIENT
  Sex: Female

DRUGS (2)
  1. EZETIMIBE [Suspect]
     Active Substance: EZETIMIBE
  2. PRAVASTATIN [Suspect]
     Active Substance: PRAVASTATIN

REACTIONS (2)
  - Pain [Unknown]
  - Drug intolerance [Unknown]
